FAERS Safety Report 5646457-X (Version None)
Quarter: 2008Q1

REPORT INFORMATION
  Report Type: 
  Country: None (occurrence: None)
  Receive Date: 20080228
  Receipt Date: 20080228
  Transmission Date: 20080703
  Serious: Yes (Death, Hospitalization)
  Sender: FDA-Public Use
  Company Number: None

PATIENT
  Sex: Male
  Weight: 91.6266 kg

DRUGS (8)
  1. FLUOROURACIL [Suspect]
     Indication: GASTRIC CANCER
     Dosage: QD X 5 DAYS PATIENT RECEIVED 1ST CYCLE
  2. LEUCOVORIN CALCIUM [Suspect]
     Indication: GASTRIC CANCER
     Dosage: PATIENT RECEIVED 1ST CYCLE
  3. LOPRESSOR [Concomitant]
  4. OXYBUTYNIN CHLORIDE [Concomitant]
  5. CLONIDINE [Concomitant]
  6. PRILOSEC [Concomitant]
  7. PROLIXIN [Concomitant]
  8. NYSTATIN [Concomitant]

REACTIONS (10)
  - ABASIA [None]
  - DEHYDRATION [None]
  - DIARRHOEA [None]
  - ELECTROLYTE IMBALANCE [None]
  - MUCOSAL INFLAMMATION [None]
  - NAUSEA [None]
  - NEUTROPENIA [None]
  - ORAL INTAKE REDUCED [None]
  - THROMBOCYTOPENIA [None]
  - VOMITING [None]
